FAERS Safety Report 4496753-7 (Version None)
Quarter: 2004Q4

REPORT INFORMATION
  Report Type: 
  Country: None (occurrence: None)
  Receive Date: 20041109
  Receipt Date: 20041103
  Transmission Date: 20050328
  Serious: Yes (Life-Threatening)
  Sender: FDA-Public Use
  Company Number: CN-MERCK-0411CHN00012

PATIENT
  Age: 78 Year
  Sex: Male

DRUGS (1)
  1. VIOXX [Suspect]
     Indication: POST PROCEDURAL PAIN
     Route: 048
     Dates: start: 20031001, end: 20031001

REACTIONS (1)
  - RESPIRATORY FAILURE [None]
